FAERS Safety Report 8336746 (Version 5)
Quarter: 2014Q3

REPORT INFORMATION
  Report Type: Report from Study
  Country: JP (occurrence: JP)
  Receive Date: 20120113
  Receipt Date: 20140717
  Transmission Date: 20150326
  Serious: Yes (Hospitalization, Other)
  Sender: FDA-Public Use
  Company Number: PHHY2012JP002526

PATIENT
  Age: 35 Year
  Sex: Female

DRUGS (28)
  1. CLOZARIL [Suspect]
     Active Substance: CLOZAPINE
     Dosage: 300 MG, UNK
     Route: 048
     Dates: start: 20111201, end: 20111207
  2. ACINON [Concomitant]
     Active Substance: NIZATIDINE
     Indication: SCHIZOPHRENIA, PARANOID TYPE
     Dosage: 150 MG, UNK
     Route: 048
     Dates: start: 20110814, end: 20120106
  3. CERCINE [Concomitant]
     Active Substance: DIAZEPAM
     Dosage: 6 MG, UNK
     Route: 048
     Dates: start: 20111027, end: 20120106
  4. CLOZARIL [Suspect]
     Active Substance: CLOZAPINE
     Dosage: 25 MG, UNK
     Route: 048
     Dates: start: 20110916, end: 20110921
  5. RISPERIDONE. [Concomitant]
     Active Substance: RISPERIDONE
     Dosage: 8 MG, UNK
     Route: 048
     Dates: start: 20110915
  6. RISPERIDONE. [Concomitant]
     Active Substance: RISPERIDONE
     Dosage: 6 MG, UNK
     Route: 048
  7. ZOTEPINE [Concomitant]
     Active Substance: ZOTEPINE
     Dosage: 50 MG, UNK
     Route: 048
     Dates: end: 20111102
  8. TASMOLIN [Concomitant]
     Active Substance: BIPERIDEN
     Dosage: 3 MG, UNK
     Route: 048
     Dates: end: 20120106
  9. MUCOSTA [Concomitant]
     Active Substance: REBAMIPIDE
     Indication: SCHIZOPHRENIA, PARANOID TYPE
     Dosage: 300 MG, UNK
     Route: 048
     Dates: start: 20110814, end: 20120106
  10. LOSIZOPILON [Concomitant]
     Dosage: 50 MG, UNK
     Route: 048
     Dates: end: 20111102
  11. CLOZARIL [Suspect]
     Active Substance: CLOZAPINE
     Dosage: 300 MG, UNK
     Route: 048
     Dates: start: 20111013, end: 20111019
  12. LOSIZOPILON [Concomitant]
     Dosage: 75 MG, UNK
     Route: 048
  13. FLUNITRAZEPAM [Concomitant]
     Active Substance: FLUNITRAZEPAM
     Indication: SCHIZOPHRENIA, PARANOID TYPE
     Dosage: 2 MG, UNK
     Route: 048
     Dates: start: 20110807, end: 20120106
  14. PRIMPERAN [Concomitant]
     Active Substance: METOCLOPRAMIDE HYDROCHLORIDE
     Indication: SCHIZOPHRENIA, PARANOID TYPE
     Dosage: 15 MG, UNK
     Route: 048
     Dates: start: 20110814, end: 20120106
  15. CLOZARIL [Suspect]
     Active Substance: CLOZAPINE
     Dosage: 400 MG, UNK
     Route: 048
     Dates: start: 20111208, end: 20120106
  16. SERENACE [Concomitant]
     Active Substance: HALOPERIDOL
     Dates: start: 20120106
  17. TASMOLIN [Concomitant]
     Active Substance: BIPERIDEN
     Indication: SCHIZOPHRENIA, PARANOID TYPE
     Dosage: 2 MG, UNK
     Route: 048
  18. LOSIZOPILON [Concomitant]
     Dosage: 100 MG, UNK
     Route: 048
     Dates: start: 20110915
  19. CLOZARIL [Suspect]
     Active Substance: CLOZAPINE
     Dosage: 100 MG, UNK
     Route: 048
     Dates: start: 20110929, end: 20111005
  20. CLOZARIL [Suspect]
     Active Substance: CLOZAPINE
     Dosage: 400 MG, UNK
     Route: 048
     Dates: start: 20111020, end: 20111124
  21. CLOZARIL [Suspect]
     Active Substance: CLOZAPINE
     Dosage: 250 MG, UNK
     Route: 048
  22. RISPERIDONE. [Concomitant]
     Active Substance: RISPERIDONE
     Dosage: 4 MG, UNK
     Route: 048
     Dates: end: 20111019
  23. CLOZARIL [Suspect]
     Active Substance: CLOZAPINE
     Dosage: 50 MG, UNK
     Route: 048
     Dates: start: 20110922, end: 20110928
  24. CLOZARIL [Suspect]
     Active Substance: CLOZAPINE
     Dosage: 200 MG, UNK
     Route: 048
     Dates: start: 20111006, end: 20111012
  25. ZOTEPINE [Concomitant]
     Active Substance: ZOTEPINE
     Dosage: 100 MG, UNK
     Route: 048
     Dates: start: 20110915
  26. CLOZARIL [Suspect]
     Active Substance: CLOZAPINE
     Indication: SCHIZOPHRENIA, PARANOID TYPE
     Dosage: 12.5 MG, UNK
     Route: 048
     Dates: start: 20110915
  27. CLOZARIL [Suspect]
     Active Substance: CLOZAPINE
     Dosage: 200 MG, UNK
     Route: 048
     Dates: start: 20111125, end: 20111130
  28. ZOTEPINE [Concomitant]
     Active Substance: ZOTEPINE
     Dosage: 75 MG, UNK
     Route: 048

REACTIONS (10)
  - Respiratory failure [Recovered/Resolved]
  - Nausea [Recovering/Resolving]
  - Polydipsia [Recovered/Resolved]
  - White blood cell count increased [Unknown]
  - Tremor [Recovered/Resolved]
  - Hyponatraemia [Unknown]
  - Mental disorder [Recovered/Resolved]
  - Generalised tonic-clonic seizure [Recovered/Resolved]
  - Salivary hypersecretion [Recovered/Resolved]
  - Nasopharyngitis [Recovered/Resolved]

NARRATIVE: CASE EVENT DATE: 20111027
